FAERS Safety Report 4780095-6 (Version None)
Quarter: 2005Q3

REPORT INFORMATION
  Report Type: 
  Country: None (occurrence: None)
  Receive Date: 20050914
  Receipt Date: 20050427
  Transmission Date: 20060218
  Serious: Yes (Hospitalization)
  Sender: FDA-Public Use
  Company Number: 163-20785-05040563

PATIENT
  Age: 67 Year
  Sex: Male
  Weight: 86.1834 kg

DRUGS (13)
  1. THALOMID [Suspect]
     Indication: MULTIPLE MYELOMA
     Dosage: ORAL, 200 MG, DAILY, ORAL
     Route: 048
     Dates: start: 20050404, end: 20050407
  2. THALOMID [Suspect]
     Indication: MULTIPLE MYELOMA
     Dosage: ORAL, 200 MG, DAILY, ORAL
     Route: 048
     Dates: start: 20050226
  3. VELCADE [Suspect]
     Indication: MULTIPLE MYELOMA
     Dosage: , 2MG, DAILY ON DAYS 1, 4, 8, 11; INTRAVENOUS
     Route: 042
     Dates: start: 20050401, end: 20050411
  4. VELCADE [Suspect]
     Indication: MULTIPLE MYELOMA
     Dosage: , 2MG, DAILY ON DAYS 1, 4, 8, 11; INTRAVENOUS
     Route: 042
     Dates: start: 20050226
  5. DEXAMETHASONE [Suspect]
     Indication: MULTIPLE MYELOMA
     Dosage: ; 40 MG, DAILY; ORAL
     Route: 048
     Dates: start: 20050404, end: 20050407
  6. DEXAMETHASONE [Suspect]
     Indication: MULTIPLE MYELOMA
     Dosage: ; 40 MG, DAILY; ORAL
     Route: 048
     Dates: start: 20050226
  7. CISPLATIN [Suspect]
     Indication: MULTIPLE MYELOMA
     Dosage: 20 MG, DAILY; INTRAVENOUS
     Route: 042
     Dates: start: 20050404, end: 20050407
  8. CISPLATIN [Suspect]
     Indication: MULTIPLE MYELOMA
     Dosage: 20 MG, DAILY; INTRAVENOUS
     Route: 042
     Dates: start: 20050226
  9. ADRIAMYCIN PFS [Suspect]
     Indication: MULTIPLE MYELOMA
     Dates: start: 20050226
  10. CYCLOPHOSPHAMIDE [Suspect]
     Indication: MULTIPLE MYELOMA
     Dosage: 800 MG, DAILY; INTRAVENOUS
     Route: 042
     Dates: start: 20050404, end: 20050407
  11. CYCLOPHOSPHAMIDE [Suspect]
     Indication: MULTIPLE MYELOMA
     Dosage: 800 MG, DAILY; INTRAVENOUS
     Route: 042
     Dates: start: 20050226
  12. ETOPOSIDE [Suspect]
     Indication: MULTIPLE MYELOMA
     Dosage: 80 MG, DAILY; INTRAVENOUS
     Route: 042
     Dates: start: 20050404, end: 20050407
  13. ETOPOSIDE [Suspect]
     Indication: MULTIPLE MYELOMA
     Dosage: 80 MG, DAILY; INTRAVENOUS
     Route: 042
     Dates: start: 20050226

REACTIONS (13)
  - ASTHENIA [None]
  - BACTERAEMIA [None]
  - COUGH [None]
  - DEHYDRATION [None]
  - DYSPNOEA [None]
  - FALL [None]
  - FEBRILE NEUTROPENIA [None]
  - INJURY [None]
  - NEUTROPENIA [None]
  - PNEUMONIA [None]
  - RHINORRHOEA [None]
  - SINUSITIS [None]
  - STAPHYLOCOCCAL INFECTION [None]
